FAERS Safety Report 9780691 (Version 1)
Quarter: 2013Q4

REPORT INFORMATION
  Report Type: Spontaneous
  Country: IN (occurrence: IN)
  Receive Date: 20131224
  Receipt Date: 20131224
  Transmission Date: 20140711
  Serious: Yes (Congenital Anomaly, Other)
  Sender: FDA-Public Use
  Company Number: IN-SUN PHARMACEUTICAL INDUSTRIES LTD-2013SUN05240

PATIENT
  Age: 18 Hour
  Sex: Female

DRUGS (1)
  1. VALPROIC ACID [Suspect]
     Indication: MATERNAL EXPOSURE DURING PREGNANCY
     Dosage: MATERNAL DOSE: 300 MG, DAILY
     Route: 064

REACTIONS (5)
  - Foetal anticonvulsant syndrome [Unknown]
  - Persistent left superior vena cava [Not Recovered/Not Resolved]
  - Dysmorphism [Not Recovered/Not Resolved]
  - Limb malformation [Not Recovered/Not Resolved]
  - Foetal exposure during pregnancy [Recovered/Resolved]
